FAERS Safety Report 9613794 (Version 2)
Quarter: 2013Q4

REPORT INFORMATION
  Report Type: Spontaneous
  Country: US (occurrence: US)
  Receive Date: 20131010
  Receipt Date: 20131024
  Transmission Date: 20140711
  Serious: Yes (Other)
  Sender: FDA-Public Use
  Company Number: US-RB-059293-13

PATIENT
  Age: 57 Year
  Sex: Female

DRUGS (2)
  1. SUBOXONE FILM [Suspect]
     Indication: PRODUCT USED FOR UNKNOWN INDICATION
     Dosage: SUBOXONE FILM
     Route: 065
  2. SUBOXONE FILM [Suspect]
     Dosage: SUBOXONE FILM
     Route: 065

REACTIONS (5)
  - Breast cancer stage II [Recovered/Resolved]
  - Underdose [Not Recovered/Not Resolved]
  - Endometriosis [Not Recovered/Not Resolved]
  - Adverse event [Not Recovered/Not Resolved]
  - Constipation [Not Recovered/Not Resolved]
